FAERS Safety Report 19004201 (Version 1)
Quarter: 2021Q1

REPORT INFORMATION
  Report Type: Spontaneous
  Country: US (occurrence: US)
  Receive Date: 20210312
  Receipt Date: 20210312
  Transmission Date: 20210420
  Serious: Yes (Death, Hospitalization)
  Sender: FDA-Public Use
  Company Number: US-FERRINGPH-2021FE01502

PATIENT
  Sex: Male

DRUGS (2)
  1. ACTHREL [Suspect]
     Active Substance: CORTICORELIN OVINE TRIFLUTATE
     Dosage: 1 DF, ONCE/SINGLE
     Route: 065
     Dates: start: 2019
  2. ACTHREL [Suspect]
     Active Substance: CORTICORELIN OVINE TRIFLUTATE
     Indication: ADRENOCORTICOTROPIC HORMONE DEFICIENCY
     Dosage: UNK
     Route: 065
     Dates: start: 2001, end: 2005

REACTIONS (8)
  - Skin ulcer [Recovering/Resolving]
  - Infection [Unknown]
  - Organ failure [Fatal]
  - Product use in unapproved indication [Unknown]
  - Incorrect product administration duration [Unknown]
  - Dermatitis [Unknown]
  - Sepsis [Fatal]
  - Loss of personal independence in daily activities [Unknown]

NARRATIVE: CASE EVENT DATE: 2001
